FAERS Safety Report 7043355-4 (Version None)
Quarter: 2010Q3

REPORT INFORMATION
  Report Type: 
  Country: None (occurrence: None)
  Receive Date: 20100929
  Receipt Date: 20100726
  Transmission Date: 20110219
  Serious: No
  Sender: FDA-Public Use
  Company Number: US-WYE-H16684110

PATIENT
  Age: 36 Year
  Sex: Male
  Weight: 113.5 kg

DRUGS (2)
  1. PRISTIQ [Suspect]
     Indication: MAJOR DEPRESSION
     Dosage: 50 MG, 1X PER 1 DAY, ORAL
     Route: 048
     Dates: start: 20100626
  2. XANAX [Concomitant]

REACTIONS (1)
  - DRUG SCREEN FALSE POSITIVE [None]
